FAERS Safety Report 9493235 (Version 5)
Quarter: 2014Q1

REPORT INFORMATION
  Report Type: Report from Study
  Country: US (occurrence: US)
  Receive Date: 20130902
  Receipt Date: 20140220
  Transmission Date: 20141002
  Serious: Yes (Hospitalization, Other)
  Sender: FDA-Public Use
  Company Number: PHHO2013US008430

PATIENT
  Age: 86 Year
  Sex: Male

DRUGS (1)
  1. SOM230 [Suspect]
     Indication: PANCREATIC CARCINOMA
     Dosage: 900 UG, BID
     Route: 058
     Dates: start: 20130612, end: 20130618

REACTIONS (4)
  - Hyperglycaemia [Recovered/Resolved]
  - Amylase increased [Recovered/Resolved]
  - Ascites [Recovered/Resolved]
  - Pancreatic leak [Recovered/Resolved]
